FAERS Safety Report 6960584-6 (Version None)
Quarter: 2010Q3

REPORT INFORMATION
  Report Type: 
  Country: None (occurrence: None)
  Receive Date: 20100901
  Receipt Date: 20100823
  Transmission Date: 20110219
  Serious: Yes (Hospitalization)
  Sender: FDA-Public Use
  Company Number: FR-PFIZER INC-2010100340

PATIENT
  Age: 78 Year
  Sex: Female
  Weight: 59 kg

DRUGS (2)
  1. TAHOR [Suspect]
     Indication: LOW DENSITY LIPOPROTEIN INCREASED
     Dosage: 80 MG, 1X/DAY
     Route: 048
     Dates: start: 20100525, end: 20100805
  2. TAHOR [Suspect]
     Indication: CEREBROVASCULAR ACCIDENT

REACTIONS (3)
  - CHOLESTASIS [None]
  - CYTOLYTIC HEPATITIS [None]
  - HEPATITIS [None]
